FAERS Safety Report 6282369-9 (Version None)
Quarter: 2009Q3

REPORT INFORMATION
  Report Type: 
  Country: None (occurrence: None)
  Receive Date: 20090721
  Receipt Date: 20090721
  Transmission Date: 20100115
  Serious: Yes (Other)
  Sender: FDA-Public Use
  Company Number: None

PATIENT
  Age: 33 Year
  Sex: Male
  Weight: 43.5453 kg

DRUGS (1)
  1. LAMOTRIGINE [Suspect]
     Indication: EPILEPSY
     Dosage: 250MG/D 4 DIVIDED DOSES PO
     Route: 048
     Dates: start: 20090401, end: 20090624

REACTIONS (3)
  - CONFUSIONAL STATE [None]
  - DRUG DOSE OMISSION [None]
  - GENERALISED NON-CONVULSIVE EPILEPSY [None]
